FAERS Safety Report 15687520 (Version 1)
Quarter: 2018Q4

REPORT INFORMATION
  Report Type: Spontaneous
  Country: US (occurrence: US)
  Receive Date: 20181205
  Receipt Date: 20181205
  Transmission Date: 20190205
  Serious: No
  Sender: FDA-Public Use
  Company Number: US-ROCHE-2079142

PATIENT
  Sex: Female

DRUGS (28)
  1. CARVEDILOL. [Concomitant]
     Active Substance: CARVEDILOL
     Indication: ARRHYTHMIA
     Dosage: AM, PM
     Route: 065
     Dates: start: 20140905
  2. ESOMEPRAZOLE MAGNESIUM. [Concomitant]
     Active Substance: ESOMEPRAZOLE MAGNESIUM
     Dosage: 1 PER DAY; PM
     Route: 065
     Dates: start: 20160712
  3. BIOTIN [Concomitant]
     Active Substance: BIOTIN
     Dosage: AM
     Route: 065
     Dates: start: 20130725
  4. RIVAROXABAN [Concomitant]
     Active Substance: RIVAROXABAN
     Indication: ARRHYTHMIA
     Dosage: SUPPER
     Route: 065
     Dates: start: 20130712
  5. FAMVIR (UNITED STATES) [Concomitant]
     Indication: ORAL HERPES
     Route: 065
  6. ACETAMINOPHEN. [Concomitant]
     Active Substance: ACETAMINOPHEN
     Route: 065
  7. GABAPENTINE [Concomitant]
     Active Substance: GABAPENTIN
     Indication: NEURALGIA
     Dosage: 3 PER DAY
     Route: 065
     Dates: start: 20160621
  8. XARELTO [Concomitant]
     Active Substance: RIVAROXABAN
  9. VALIUM [Suspect]
     Active Substance: DIAZEPAM
     Indication: DEPRESSION
     Route: 065
  10. SPIRONOLACTONE. [Concomitant]
     Active Substance: SPIRONOLACTONE
     Indication: BLOOD PRESSURE MEASUREMENT
     Dosage: AM
     Route: 065
     Dates: start: 20110913
  11. SILDENAFIL CITRATE. [Concomitant]
     Active Substance: SILDENAFIL CITRATE
     Indication: PULMONARY HYPERTENSION
     Dosage: AM, PM
     Route: 065
     Dates: start: 20101214
  12. FUROSEMIDE. [Concomitant]
     Active Substance: FUROSEMIDE
     Dosage: AM
     Route: 065
     Dates: start: 20141230
  13. LOSARTAN. [Concomitant]
     Active Substance: LOSARTAN
     Indication: BLOOD PRESSURE MEASUREMENT
     Dosage: AM
     Route: 065
     Dates: start: 20141226
  14. ESOMEPRAZOLE MAGNESIUM. [Concomitant]
     Active Substance: ESOMEPRAZOLE MAGNESIUM
     Dosage: 1 PER DAY; AM
     Route: 065
     Dates: start: 20160717
  15. VITAMIN C [Concomitant]
     Active Substance: ASCORBIC ACID
     Dosage: PM
     Route: 065
  16. COMPAZINE [Concomitant]
     Active Substance: PROCHLORPERAZINE MALEATE
  17. QVAR [Concomitant]
     Active Substance: BECLOMETHASONE DIPROPIONATE
     Indication: PULMONARY HYPERTENSION
     Dosage: AM, PM
     Route: 065
     Dates: start: 20160831
  18. LEVOTHYROXINE. [Concomitant]
     Active Substance: LEVOTHYROXINE
     Indication: THYROID DISORDER
     Dosage: IN NIGHT; 8 PER WEEK
     Route: 065
     Dates: start: 20040923
  19. CYCLOBENZAPRINE. [Concomitant]
     Active Substance: CYCLOBENZAPRINE
     Indication: NECK PAIN
     Route: 065
  20. FEXOFENADINE [Concomitant]
     Active Substance: FEXOFENADINE\FEXOFENADINE HYDROCHLORIDE
     Indication: SINUS DISORDER
     Dosage: SUPPER
     Route: 065
     Dates: start: 20151020
  21. CALCIUM CITRATE [Concomitant]
     Active Substance: CALCIUM CITRATE
     Dosage: AM, PM
     Route: 065
  22. VITAMIN D3 [Concomitant]
     Active Substance: CHOLECALCIFEROL
     Route: 065
     Dates: start: 20111019
  23. MELATONIN [Concomitant]
     Active Substance: MELATONIN
     Indication: SLEEP DISORDER
     Route: 065
  24. DOFETILIDE. [Concomitant]
     Active Substance: DOFETILIDE
     Indication: ARRHYTHMIA
     Route: 065
  25. BACLOFEN. [Concomitant]
     Active Substance: BACLOFEN
     Indication: NECK PAIN
     Route: 065
  26. BUPROPION. [Concomitant]
     Active Substance: BUPROPION
     Indication: DEPRESSION
     Route: 065
  27. NASACORT ALLERGY 24HR [Concomitant]
     Active Substance: TRIAMCINOLONE ACETONIDE
     Route: 065
     Dates: start: 20150913
  28. DOFETILIDE. [Concomitant]
     Active Substance: DOFETILIDE
     Indication: ATRIAL FIBRILLATION
     Dosage: ONGOING: YES
     Route: 065
     Dates: start: 20131217

REACTIONS (1)
  - Drug hypersensitivity [Unknown]
